FAERS Safety Report 9104825 (Version 3)
Quarter: 2013Q1

REPORT INFORMATION
  Report Type: Spontaneous
  Country: US (occurrence: US)
  Receive Date: 20130220
  Receipt Date: 20130322
  Transmission Date: 20140127
  Serious: No
  Sender: FDA-Public Use
  Company Number: US-009507513-1302USA008305

PATIENT
  Age: 53 None
  Sex: Female

DRUGS (4)
  1. PEG-INTRON [Suspect]
     Indication: HEPATITIS C
     Dosage: UNK
     Dates: start: 20130214, end: 20130228
  2. PEG-INTRON [Suspect]
     Dosage: UNK
  3. REBETOL [Suspect]
     Dosage: UNK
     Route: 048
     Dates: start: 20130214, end: 20130228
  4. TELAPREVIR [Suspect]
     Indication: HEPATITIS C
     Dosage: UNK
     Dates: start: 20130214, end: 20130228

REACTIONS (15)
  - Hypertension [Unknown]
  - Pyrexia [Unknown]
  - Injection site reaction [Unknown]
  - Chills [Unknown]
  - Fatigue [Unknown]
  - Rash [Unknown]
  - Pruritus [Unknown]
  - Injection site reaction [Unknown]
  - Nervousness [Unknown]
  - Rash [Unknown]
  - Eye swelling [Unknown]
  - Kidney infection [Unknown]
  - Pruritus [Unknown]
  - Decreased appetite [Unknown]
  - Musculoskeletal disorder [Unknown]
